FAERS Safety Report 9795597 (Version 3)
Quarter: 2014Q1

REPORT INFORMATION
  Report Type: Spontaneous
  Country: GB (occurrence: GB)
  Receive Date: 20140103
  Receipt Date: 20140324
  Transmission Date: 20141002
  Serious: Yes (Other)
  Sender: FDA-Public Use
  Company Number: GB-009507513-1312GBR012017

PATIENT
  Age: 37 Year
  Sex: Female
  Weight: 130 kg

DRUGS (1)
  1. NEXPLANON [Suspect]
     Indication: CONTRACEPTION
     Dosage: THIRD IMPLANT, AT LEFT ARM
     Route: 059
     Dates: start: 20130103, end: 20131217

REACTIONS (4)
  - Unintended pregnancy [Unknown]
  - Medical device complication [Not Recovered/Not Resolved]
  - Device expulsion [Not Recovered/Not Resolved]
  - Drug dose omission [Unknown]
